FAERS Safety Report 5604526-4 (Version None)
Quarter: 2008Q1

REPORT INFORMATION
  Report Type: 
  Country: None (occurrence: None)
  Receive Date: 20080124
  Receipt Date: 20080124
  Transmission Date: 20080703
  Serious: Yes (Other)
  Sender: FDA-Public Use
  Company Number: None

PATIENT
  Age: 58 Year
  Sex: Male
  Weight: 65 kg

DRUGS (1)
  1. HEPARIN [Suspect]
     Indication: CORONARY ARTERY DISEASE
     Dosage: 26,000 UNITS X1 IV BOLUS
     Route: 040
     Dates: start: 20080118, end: 20080118

REACTIONS (2)
  - MEAN ARTERIAL PRESSURE DECREASED [None]
  - PROCEDURAL COMPLICATION [None]
